FAERS Safety Report 8974286 (Version 1)
Quarter: 2012Q4

REPORT INFORMATION
  Report Type: Spontaneous
  Country: US (occurrence: None)
  Receive Date: 20121217
  Receipt Date: 20121217
  Transmission Date: 20130627
  Serious: Yes (Other)
  Sender: FDA-Public Use
  Company Number: None

PATIENT
  Age: 29 Year
  Sex: Female
  Weight: 99.79 kg

DRUGS (1)
  1. VERAPAMIL [Suspect]
     Indication: MIGRAINE HEADACHE
     Dosage: 120mg 1 x daily po
     Route: 048
     Dates: start: 20120901, end: 20121001

REACTIONS (7)
  - Feeling abnormal [None]
  - Depression [None]
  - Agitation [None]
  - Frustration [None]
  - Sleep disorder [None]
  - Tearfulness [None]
  - Suicidal ideation [None]
